FAERS Safety Report 8003460-2 (Version None)
Quarter: 2011Q4

REPORT INFORMATION
  Report Type: 
  Country: None (occurrence: None)
  Receive Date: 20111222
  Receipt Date: 20111222
  Transmission Date: 20120403
  Serious: Yes (Hospitalization)
  Sender: FDA-Public Use
  Company Number: None

PATIENT
  Age: 44 Year
  Sex: Male
  Weight: 79.378 kg

DRUGS (1)
  1. LARIAM [Suspect]
     Indication: MALARIA PROPHYLAXIS
     Dosage: 250MG
     Route: 048
     Dates: start: 20021115, end: 20030513

REACTIONS (8)
  - TINNITUS [None]
  - NAUSEA [None]
  - BALANCE DISORDER [None]
  - DYSARTHRIA [None]
  - AMNESIA [None]
  - TREMOR [None]
  - PHOTOPHOBIA [None]
  - DIZZINESS POSTURAL [None]
